FAERS Safety Report 7501879-7 (Version None)
Quarter: 2011Q2

REPORT INFORMATION
  Report Type: 
  Country: None (occurrence: None)
  Receive Date: 20110525
  Receipt Date: 20110510
  Transmission Date: 20111010
  Serious: Yes (Hospitalization)
  Sender: FDA-Public Use
  Company Number: US-JNJFOC-20110306006

PATIENT
  Sex: Female
  Weight: 51.26 kg

DRUGS (21)
  1. FISH OIL [Concomitant]
     Route: 048
  2. VITAMIN D [Concomitant]
  3. BENADRYL [Concomitant]
     Indication: PREMEDICATION
  4. CENTRUM SILVER [Concomitant]
     Route: 048
  5. ZINC [Concomitant]
     Route: 048
  6. LISINOPRIL [Concomitant]
     Dates: start: 20101228
  7. TRAMADOL HCL [Concomitant]
  8. CALCIUM CARBONATE [Concomitant]
     Route: 048
  9. OCUVITE NOS [Concomitant]
  10. ATENOLOL [Concomitant]
     Indication: HYPERTENSION
     Dates: start: 20100108
  11. INFLUENZA VACCINE [Concomitant]
     Dates: start: 20100920
  12. REMICADE [Suspect]
     Dosage: INFUSION #12
     Route: 042
     Dates: start: 20101101
  13. REMICADE [Suspect]
     Dosage: INFUSION #13
     Route: 042
     Dates: start: 20101213
  14. ASPIRIN [Concomitant]
  15. PATANOL [Concomitant]
  16. REMICADE [Suspect]
     Route: 042
     Dates: start: 20090831
  17. OMEPRAZOLE [Concomitant]
  18. GLUCOSAMINE + CHONDROITIN COMBO [Concomitant]
     Dosage: 500-400 TWICE DAILY
  19. REMICADE [Suspect]
     Indication: RHEUMATOID ARTHRITIS
     Dosage: 6 MG/KG; INFUSION # 11
     Route: 042
     Dates: start: 20100816
  20. PREDNISONE [Concomitant]
     Indication: ARTHRALGIA
     Dosage: INTERMITTENT; 10-20 MG DAILY
  21. ALENDRONATE SODIUM [Concomitant]
     Dates: start: 20100108

REACTIONS (8)
  - SYNOVITIS [None]
  - INFUSION RELATED REACTION [None]
  - RETINAL HAEMORRHAGE [None]
  - ARTHRALGIA [None]
  - GLYCOSYLATED HAEMOGLOBIN [None]
  - SWELLING [None]
  - CEREBROVASCULAR ACCIDENT [None]
  - PRURITUS [None]
